FAERS Safety Report 5340598-2 (Version None)
Quarter: 2007Q2

REPORT INFORMATION
  Report Type: 
  Country: None (occurrence: None)
  Receive Date: 20070531
  Receipt Date: 20070528
  Transmission Date: 20071010
  Serious: Yes (Other)
  Sender: FDA-Public Use
  Company Number: CA-ASTRAZENECA-2004UW04321

PATIENT
  Age: 32 Year

DRUGS (7)
  1. SEROQUEL [Suspect]
     Route: 048
     Dates: start: 19980924, end: 19990329
  2. VALPROIC ACID [Suspect]
     Dosage: 500 MG, PO, QAM, 750 MG PO QPM
     Dates: start: 19960719, end: 19990329
  3. CISAPRIDE [Concomitant]
     Route: 048
  4. HALDOL [Concomitant]
     Route: 048
  5. PAXIL [Concomitant]
     Route: 048
  6. LOSEC [Concomitant]
     Route: 048
  7. CLOZARIL [Concomitant]
     Route: 048
     Dates: start: 19950809, end: 19990329

REACTIONS (1)
  - PANCREATITIS NECROTISING [None]
